FAERS Safety Report 4755093-9 (Version None)
Quarter: 2005Q3

REPORT INFORMATION
  Report Type: 
  Country: None (occurrence: None)
  Receive Date: 20050826
  Receipt Date: 20050810
  Transmission Date: 20060218
  Serious: Yes (Hospitalization)
  Sender: FDA-Public Use
  Company Number: TRP_0282_2005

PATIENT
  Age: 55 Year
  Sex: Male
  Weight: 98.8842 kg

DRUGS (12)
  1. RIBASPHERE [Suspect]
     Indication: HEPATITIS C
     Dosage: 1000 MG QDAY PO
     Route: 048
     Dates: start: 20041022
  2. PEG-INTRON [Suspect]
     Indication: HEPATITIS C
     Dosage: 150 MCG QWK SC
     Route: 058
     Dates: start: 20041022
  3. ALLEGRA [Concomitant]
  4. ARTHROTEC [Concomitant]
  5. CLONAZEPAM [Concomitant]
  6. METHADONE HCL [Concomitant]
  7. HYDROCHLOROTHIAZIDE [Concomitant]
  8. PIROXICAM [Concomitant]
  9. WELLBUTRIN SR [Concomitant]
  10. XANAX [Concomitant]
  11. ARTHROTEC [Concomitant]
  12. METHADONE HYDROCHLORIDE SOLUTION [Concomitant]

REACTIONS (3)
  - CELLULITIS [None]
  - FURUNCLE [None]
  - STAPHYLOCOCCAL INFECTION [None]
